FAERS Safety Report 6156347-4 (Version None)
Quarter: 2009Q2

REPORT INFORMATION
  Report Type: 
  Country: None (occurrence: None)
  Receive Date: 20090415
  Receipt Date: 20090409
  Transmission Date: 20091009
  Serious: Yes (Other)
  Sender: FDA-Public Use
  Company Number: US-GILEAD-2009-0021418

PATIENT
  Sex: Female

DRUGS (4)
  1. TRUVADA [Suspect]
     Dates: start: 20060802, end: 20090129
  2. ATAZANAVIR SULFATE [Suspect]
     Dates: start: 20060802
  3. RITONAVIR [Suspect]
     Dates: start: 20060802
  4. COMBIVIR [Suspect]
     Dates: start: 20060802

REACTIONS (1)
  - ABORTION SPONTANEOUS [None]
